FAERS Safety Report 8448327-0 (Version None)
Quarter: 2012Q2

REPORT INFORMATION
  Report Type: 
  Country: None (occurrence: None)
  Receive Date: 20120619
  Receipt Date: 20120613
  Transmission Date: 20120825
  Serious: Yes (Other)
  Sender: FDA-Public Use
  Company Number: US-PFIZER INC-HQWYE436728JUN06

PATIENT
  Sex: Female

DRUGS (4)
  1. PROVERA [Suspect]
     Dosage: UNK
  2. PREMARIN [Suspect]
     Dosage: UNK
  3. MEDROXYPROGESTERONE ACETATE [Suspect]
     Dosage: UNK
  4. PREMPRO [Suspect]
     Dosage: UNK

REACTIONS (1)
  - BREAST CANCER [None]
